FAERS Safety Report 9439678 (Version 2)
Quarter: 2014Q2

REPORT INFORMATION
  Report Type: Spontaneous
  Country: US (occurrence: US)
  Receive Date: 20130805
  Receipt Date: 20140429
  Transmission Date: 20141212
  Serious: No
  Sender: FDA-Public Use
  Company Number: US-PFIZER INC-2013223108

PATIENT
  Age: 58 Year
  Sex: Male

DRUGS (8)
  1. SUTENT [Suspect]
     Indication: RENAL CANCER
     Dosage: STRENGTH 12.5 MG
     Dates: start: 20130326
  2. DIVALPROEX SODIUM ER [Concomitant]
     Dosage: UNK
  3. DOCUSATE SODIUM [Concomitant]
  4. FIORICET [Concomitant]
  5. HYDROCODONE W/ACETAMINOPHEN [Concomitant]
  6. REMERON [Concomitant]
  7. XANAX [Concomitant]
  8. TRENTAL [Concomitant]

REACTIONS (2)
  - Accidental overdose [Unknown]
  - Insomnia [Unknown]
